FAERS Safety Report 5014623-2 (Version None)
Quarter: 2006Q2

REPORT INFORMATION
  Report Type: 
  Country: None (occurrence: None)
  Receive Date: 20060412
  Receipt Date: 20051003
  Transmission Date: 20061013
  Serious: Yes (Hospitalization)
  Sender: FDA-Public Use
  Company Number: 2005-BP-16207BP

PATIENT
  Age: 56 Year
  Sex: Female

DRUGS (11)
  1. MOBIC [Suspect]
     Indication: BACK PAIN
     Dosage: 15 MG (7.5 MG), PO
     Route: 048
     Dates: start: 20030101
  2. PREDNISONE [Concomitant]
  3. PULMICORT [Concomitant]
  4. ALBUTEROL [Concomitant]
  5. OXYCONTIN [Concomitant]
  6. OXYCONTIN IR [Concomitant]
  7. SOMA [Concomitant]
  8. DURAGESIC-100 [Concomitant]
  9. VALIUM [Concomitant]
  10. SINGULAIR [Concomitant]
  11. ZYRTEC [Concomitant]

REACTIONS (1)
  - DYSPNOEA [None]
